FAERS Safety Report 13472498 (Version 2)
Quarter: 2017Q2

REPORT INFORMATION
  Report Type: Spontaneous
  Country: CH (occurrence: CH)
  Receive Date: 20170424
  Receipt Date: 20170502
  Transmission Date: 20170830
  Serious: Yes (Other)
  Sender: FDA-Public Use
  Company Number: CH-LPDUSPRD-20170435

PATIENT
  Age: 43 Year
  Sex: Female

DRUGS (1)
  1. VENOFER [Suspect]
     Active Substance: IRON SUCROSE
     Dosage: 200 MG WEEKLY
     Route: 041
     Dates: start: 20160624, end: 20160624

REACTIONS (1)
  - Fatigue [Unknown]
